FAERS Safety Report 15703391 (Version 1)
Quarter: 2018Q4

REPORT INFORMATION
  Report Type: Spontaneous
  Country: US (occurrence: US)
  Receive Date: 20181210
  Receipt Date: 20181210
  Transmission Date: 20190205
  Serious: No
  Sender: FDA-Public Use
  Company Number: US-KYOWAKIRIN-2018BKK000265

PATIENT

DRUGS (3)
  1. VARUBI [Concomitant]
     Active Substance: ROLAPITANT
     Indication: PRODUCT USED FOR UNKNOWN INDICATION
     Dosage: UNKNOWN
     Route: 048
  2. SANCUSO [Suspect]
     Active Substance: GRANISETRON
     Indication: PROPHYLAXIS OF NAUSEA AND VOMITING
     Dosage: APPLY TO SKIN UP TO 24 HOURS BEFORE CHEMOTHERAPY (DAYS 1 AND 8). LEAVE ON FOR UP TO 7 DAYS
     Route: 062
     Dates: start: 20170822
  3. CISPLATIN. [Concomitant]
     Active Substance: CISPLATIN
     Indication: CHOLANGIOCARCINOMA
     Dosage: UNKNOWN, 1X/WEEK
     Route: 065

REACTIONS (3)
  - Inappropriate schedule of product administration [Unknown]
  - Product adhesion issue [Unknown]
  - Wrong technique in product usage process [Recovered/Resolved]
